FAERS Safety Report 14666435 (Version 1)
Quarter: 2018Q1

REPORT INFORMATION
  Report Type: Spontaneous
  Country: US (occurrence: US)
  Receive Date: 20180321
  Receipt Date: 20180321
  Transmission Date: 20180509
  Serious: No
  Sender: FDA-Public Use
  Company Number: US-VIFOR (INTERNATIONAL) INC.-VIT-2018-02769

PATIENT
  Sex: Female

DRUGS (1)
  1. VELPHORO [Suspect]
     Active Substance: FERRIC OXYHYDROXIDE
     Indication: PRODUCT USED FOR UNKNOWN INDICATION
     Route: 048
     Dates: start: 20180228

REACTIONS (3)
  - Diarrhoea [Unknown]
  - International normalised ratio abnormal [Not Recovered/Not Resolved]
  - Drug level changed [Unknown]

NARRATIVE: CASE EVENT DATE: 201803
